FAERS Safety Report 4715617-4 (Version None)
Quarter: 2005Q3

REPORT INFORMATION
  Report Type: 
  Country: None (occurrence: None)
  Receive Date: 20050713
  Receipt Date: 20050704
  Transmission Date: 20060218
  Serious: Yes (Hospitalization)
  Sender: FDA-Public Use
  Company Number: 2005-07-0057

PATIENT
  Age: 30 Year
  Sex: Female
  Weight: 49 kg

DRUGS (10)
  1. CELESTENE (BETAMETHASONE SODIUM PHOSPHATE) INJECTABLE SOLUTION ^LIKE C [Suspect]
     Indication: PREMATURE LABOUR
     Dosage: 12 MG QD INTRAMUSCULAR
     Route: 030
     Dates: start: 20050601, end: 20050602
  2. SALBUMOL FORT INJECTABLE SOLUTION [Suspect]
     Indication: PREMATURE LABOUR
     Dosage: 5-7.5 MG* + 5, 10 7.5MG INTRAVENOUS
     Route: 042
     Dates: start: 20050602, end: 20050603
  3. SALBUMOL FORT INJECTABLE SOLUTION [Suspect]
     Indication: PREMATURE LABOUR
     Dosage: 5-7.5 MG* + 5, 10 7.5MG INTRAVENOUS
     Route: 042
     Dates: start: 20050603, end: 20050604
  4. SALBUMOL FORT INJECTABLE SOLUTION [Suspect]
     Indication: PREMATURE LABOUR
     Dosage: 5-7.5 MG* + 5, 10 7.5MG INTRAVENOUS
     Route: 042
     Dates: start: 20050602, end: 20050605
  5. SALBUMOL FORT INJECTABLE SOLUTION [Suspect]
     Indication: PREMATURE LABOUR
     Dosage: 5-7.5 MG* + 5, 10 7.5MG INTRAVENOUS
     Route: 042
     Dates: start: 20050604, end: 20050605
  6. ATARAX [Concomitant]
  7. TARDYFERON [Concomitant]
  8. ADALAT [Concomitant]
  9. SALBUMOL [Concomitant]
  10. SALBUMOL [Concomitant]

REACTIONS (15)
  - CARDIAC DISORDER [None]
  - CHEST DISCOMFORT [None]
  - CHEST PAIN [None]
  - COUGH [None]
  - CREPITATIONS [None]
  - DYSPNOEA [None]
  - FIBRIN D DIMER INCREASED [None]
  - HYPOCAPNIA [None]
  - HYPOXIA [None]
  - LUNG INFECTION [None]
  - PULMONARY EMBOLISM [None]
  - PULMONARY OEDEMA [None]
  - PYREXIA [None]
  - RESPIRATORY DISORDER [None]
  - TACHYCARDIA [None]
